FAERS Safety Report 6753419-8 (Version None)
Quarter: 2010Q2

REPORT INFORMATION
  Report Type: 
  Country: None (occurrence: None)
  Receive Date: 20100603
  Receipt Date: 20100525
  Transmission Date: 20101027
  Serious: Yes (Hospitalization)
  Sender: FDA-Public Use
  Company Number: FR-RB-010268-10

PATIENT
  Age: 34 Year
  Sex: Male

DRUGS (3)
  1. SUBUTEX [Suspect]
     Indication: SUBSTANCE ABUSE
     Dosage: UNKNOWN DOSING DETAILS
     Route: 060
  2. SUBUTEX [Suspect]
     Dosage: UNKNOWN DOSING DETAILS
     Route: 045
  3. RIVOTRIL [Suspect]
     Indication: DRUG USE FOR UNKNOWN INDICATION
     Dosage: UNKNOWN DOSING DETAILS
     Route: 048

REACTIONS (6)
  - DEPENDENCE [None]
  - DRUG DIVERSION [None]
  - HALLUCINATION, AUDITORY [None]
  - INCORRECT ROUTE OF DRUG ADMINISTRATION [None]
  - MALNUTRITION [None]
  - SUBSTANCE ABUSE [None]
